FAERS Safety Report 14138627 (Version 8)
Quarter: 2018Q1

REPORT INFORMATION
  Report Type: Report from Study
  Country: CA (occurrence: CA)
  Receive Date: 20171027
  Receipt Date: 20180302
  Transmission Date: 20180508
  Serious: Yes (Death, Hospitalization)
  Sender: FDA-Public Use
  Company Number: PHHY2016CA002822

PATIENT
  Age: 68 Year
  Sex: Female

DRUGS (3)
  1. SANDOSTATIN LAR DEPOT [Suspect]
     Active Substance: OCTREOTIDE ACETATE
     Indication: NEUROENDOCRINE TUMOUR
     Dosage: 30 MG, QW2 (EVERY 2 WEEKS)
     Route: 030
     Dates: start: 20160107, end: 20160530
  2. SANDOSTATIN LAR DEPOT [Suspect]
     Active Substance: OCTREOTIDE ACETATE
     Dosage: 30 MG, QMO (EVERY 4 WEEKS)
     Route: 030
     Dates: start: 20160624
  3. SANDOSTATIN [Suspect]
     Active Substance: OCTREOTIDE ACETATE
     Indication: NEUROENDOCRINE TUMOUR
     Dosage: 150 UG, BID
     Route: 058
     Dates: start: 20151201

REACTIONS (16)
  - Blood sodium decreased [Unknown]
  - Fall [Unknown]
  - Herpes zoster [Unknown]
  - Viral infection [Unknown]
  - Respiratory disorder [Unknown]
  - Lethargy [Unknown]
  - Blood pressure systolic increased [Unknown]
  - Skin ulcer [Unknown]
  - Dehydration [Unknown]
  - Asthenia [Unknown]
  - Hypotension [Unknown]
  - Rash [Recovering/Resolving]
  - Death [Fatal]
  - Fatigue [Unknown]
  - Nausea [Unknown]
  - Weight decreased [Unknown]

NARRATIVE: CASE EVENT DATE: 20160107
